FAERS Safety Report 5174000-0 (Version None)
Quarter: 2006Q4

REPORT INFORMATION
  Report Type: 
  Country: None (occurrence: None)
  Receive Date: 20061214
  Receipt Date: 20060125
  Transmission Date: 20070319
  Serious: Yes (Hospitalization)
  Sender: FDA-Public Use
  Company Number: US-ROCHE-433857

PATIENT
  Age: 25 Year
  Sex: Male
  Weight: 77.1 kg

DRUGS (1)
  1. ACCUTANE [Suspect]
     Indication: ACNE
     Route: 048
     Dates: start: 19910201, end: 19910815

REACTIONS (63)
  - AGGRESSION [None]
  - ALANINE AMINOTRANSFERASE INCREASED [None]
  - ANXIETY [None]
  - ASPARTATE AMINOTRANSFERASE INCREASED [None]
  - ASTHENIA [None]
  - BLOOD CREATININE INCREASED [None]
  - BURSITIS [None]
  - CARTILAGE INJURY [None]
  - CELLULITIS [None]
  - COLITIS ULCERATIVE [None]
  - CROHN'S DISEASE [None]
  - CYST [None]
  - DEPRESSION [None]
  - DERMOGRAPHISM [None]
  - DERMOID CYST [None]
  - DISTURBANCE IN ATTENTION [None]
  - DYSPNOEA [None]
  - ERECTILE DYSFUNCTION [None]
  - ERYTHEMA [None]
  - FALL [None]
  - FATIGUE [None]
  - FEAR [None]
  - FEELING GUILTY [None]
  - FEELINGS OF WORTHLESSNESS [None]
  - FLIGHT OF IDEAS [None]
  - FOLLICULITIS [None]
  - GASTROINTESTINAL DISORDER [None]
  - GASTROINTESTINAL EROSION [None]
  - HAEMORRHAGE [None]
  - HAEMORRHOIDS [None]
  - HEADACHE [None]
  - HEPATITIS A ANTIBODY POSITIVE [None]
  - HYPOGLYCAEMIA [None]
  - IMPINGEMENT SYNDROME [None]
  - INFLAMMATORY BOWEL DISEASE [None]
  - INGUINAL HERNIA [None]
  - INJURY [None]
  - INSOMNIA [None]
  - IRRITABLE BOWEL SYNDROME [None]
  - LIVER FUNCTION TEST ABNORMAL [None]
  - MENTAL STATUS CHANGES [None]
  - MUSCLE SPASMS [None]
  - MUSCULOSKELETAL PAIN [None]
  - OSTEOARTHRITIS [None]
  - PANIC DISORDER [None]
  - PENIS DISORDER [None]
  - PROCTITIS [None]
  - RECTAL FISSURE [None]
  - RENAL IMPAIRMENT [None]
  - RETCHING [None]
  - ROTATOR CUFF SYNDROME [None]
  - SCAR [None]
  - SELF ESTEEM DECREASED [None]
  - SENSATION OF PRESSURE [None]
  - SPERMATOCELE [None]
  - SUICIDAL IDEATION [None]
  - SWELLING [None]
  - TENDERNESS [None]
  - TENDONITIS [None]
  - THERAPY NON-RESPONDER [None]
  - TREATMENT NONCOMPLIANCE [None]
  - TREMOR [None]
  - VIRAEMIA [None]
